FAERS Safety Report 4287348-9 (Version None)
Quarter: 2004Q1

REPORT INFORMATION
  Report Type: 
  Country: None (occurrence: None)
  Receive Date: 20040209
  Receipt Date: 20030509
  Transmission Date: 20041129
  Serious: No
  Sender: FDA-Public Use
  Company Number: US-GLAXOSMITHKLINE-A0407868A

PATIENT
  Age: 67 Year
  Sex: Female
  Weight: 88.2 kg

DRUGS (4)
  1. PAXIL CR [Suspect]
     Indication: SEASONAL AFFECTIVE DISORDER
     Dosage: 25MG IN THE MORNING
     Route: 048
     Dates: start: 20030401, end: 20030508
  2. THYROID MEDICATION [Concomitant]
  3. ADVAIR DISKUS 100/50 [Concomitant]
  4. TIAZAC [Concomitant]
     Indication: TACHYCARDIA

REACTIONS (2)
  - ANXIETY [None]
  - RESTLESSNESS [None]
